FAERS Safety Report 10297548 (Version 2)
Quarter: 2014Q4

REPORT INFORMATION
  Report Type: Spontaneous
  Country: BE (occurrence: BE)
  Receive Date: 20140711
  Receipt Date: 20141027
  Transmission Date: 20150528
  Serious: Yes (Other)
  Sender: FDA-Public Use
  Company Number: BE-WATSON-2014-14998

PATIENT
  Sex: Female

DRUGS (2)
  1. FIBRISTAL (UNKNOWN) [Suspect]
     Active Substance: ULIPRISTAL
     Indication: UTERINE LEIOMYOMA
  2. FIBRISTAL (UNKNOWN) [Suspect]
     Active Substance: ULIPRISTAL
     Indication: UTERINE LEIOMYOMA
     Dosage: UNK, UNKNOWN
     Route: 065
     Dates: start: 20140501, end: 20140731

REACTIONS (3)
  - Secretion discharge [Recovered/Resolved]
  - Urinary retention [Recovered/Resolved]
  - Haemorrhage [Recovered/Resolved]
